FAERS Safety Report 5204994-6 (Version None)
Quarter: 2007Q1

REPORT INFORMATION
  Report Type: 
  Country: None (occurrence: None)
  Receive Date: 20070110
  Receipt Date: 20061017
  Transmission Date: 20070707
  Serious: Yes (Disabling)
  Sender: FDA-Public Use
  Company Number: US-BRISTOL-MYERS SQUIBB COMPANY-13522610

PATIENT
  Age: 45 Year
  Sex: Female

DRUGS (9)
  1. ABILIFY [Suspect]
     Indication: BIPOLAR DISORDER
     Route: 048
     Dates: start: 20060401
  2. CYMBALTA [Concomitant]
  3. SEROQUEL [Concomitant]
  4. ADDERALL 10 [Concomitant]
     Dates: start: 20060628
  5. SOMA [Concomitant]
  6. SUBUTEX [Concomitant]
     Dates: start: 20060501, end: 20060515
  7. SUBOXONE [Concomitant]
     Dates: start: 20060505, end: 20060515
  8. CLONAZEPAM [Concomitant]
     Dates: start: 20060526, end: 20060602
  9. DETROL LA [Concomitant]

REACTIONS (1)
  - URINARY INCONTINENCE [None]
